FAERS Safety Report 19394069 (Version 1)
Quarter: 2021Q2

REPORT INFORMATION
  Report Type: Spontaneous
  Country: US (occurrence: US)
  Receive Date: 20210609
  Receipt Date: 20210609
  Transmission Date: 20210717
  Serious: Yes (Hospitalization, Other)
  Sender: FDA-Public Use
  Company Number: US-ABBVIE-21K-163-3936821-00

PATIENT
  Age: 40 Year
  Sex: Female
  Weight: 49.94 kg

DRUGS (8)
  1. LEVOTHYROXINE. [Concomitant]
     Active Substance: LEVOTHYROXINE
     Indication: HYPOTHYROIDISM
  2. BARIATRIC ADVANTAGE ULTRA MULTI WITH IRON) [Concomitant]
     Indication: SUPPLEMENTATION THERAPY
  3. VITAMIN D [Concomitant]
     Active Substance: VITAMIN D NOS
     Indication: VITAMIN D DEFICIENCY
  4. HUMIRA [Suspect]
     Active Substance: ADALIMUMAB
     Indication: HIDRADENITIS
     Route: 058
     Dates: start: 2016, end: 202007
  5. HUMIRA [Suspect]
     Active Substance: ADALIMUMAB
     Route: 058
     Dates: start: 202101
  6. PAROXETINE. [Concomitant]
     Active Substance: PAROXETINE
     Indication: ANXIETY
  7. ATIVAN [Concomitant]
     Active Substance: LORAZEPAM
     Indication: PANIC ATTACK
  8. FLUDROCORTISONE [Concomitant]
     Active Substance: FLUDROCORTISONE
     Indication: HYPOTENSION

REACTIONS (22)
  - Abdominal abscess [Recovered/Resolved]
  - Wound dehiscence [Recovered/Resolved]
  - Hernia [Recovered/Resolved]
  - Vaginal haemorrhage [Recovered/Resolved]
  - Joint range of motion decreased [Not Recovered/Not Resolved]
  - Erythema [Recovered/Resolved]
  - Staphylococcal infection [Recovered/Resolved]
  - Hernia [Recovered/Resolved]
  - Fistula [Recovered/Resolved]
  - Osteoarthritis [Recovered/Resolved]
  - Bursitis [Not Recovered/Not Resolved]
  - Tendonitis [Not Recovered/Not Resolved]
  - Inflammation [Not Recovered/Not Resolved]
  - Pain [Recovering/Resolving]
  - Gastrointestinal wall thinning [Recovered/Resolved]
  - Cartilage injury [Not Recovered/Not Resolved]
  - Gastrooesophageal reflux disease [Unknown]
  - Seroma [Recovered/Resolved]
  - Exostosis [Recovered/Resolved]
  - Device issue [Recovered/Resolved]
  - C-reactive protein increased [Recovered/Resolved]
  - Arthralgia [Recovering/Resolving]

NARRATIVE: CASE EVENT DATE: 2018
